FAERS Safety Report 6613087-2 (Version None)
Quarter: 2010Q1

REPORT INFORMATION
  Report Type: 
  Country: None (occurrence: None)
  Receive Date: 20100223
  Receipt Date: 20100211
  Transmission Date: 20100710
  Serious: Yes (Other)
  Sender: FDA-Public Use
  Company Number: 1000011369

PATIENT
  Age: 21 Year
  Sex: Female
  Weight: 43 kg

DRUGS (2)
  1. CITALOPRAM HYDROBROMIDE [Suspect]
     Indication: ANXIETY
     Dosage: 20 MG (20 MG, 1 IN 1 D), ORAL
     Route: 048
     Dates: start: 20091217, end: 20091228
  2. ZOLPIDEM [Concomitant]

REACTIONS (10)
  - BLOOD ZINC DECREASED [None]
  - EOSINOPHIL COUNT DECREASED [None]
  - HALLUCINATION [None]
  - IRRITABILITY [None]
  - MALAISE [None]
  - NEUTROPHIL COUNT DECREASED [None]
  - PALPITATIONS [None]
  - RED BLOOD CELL COUNT INCREASED [None]
  - TREMOR [None]
  - WHITE BLOOD CELL COUNT INCREASED [None]
